FAERS Safety Report 8082356 (Version 3)
Quarter: 2014Q2

REPORT INFORMATION
  Report Type: Spontaneous
  Country: US (occurrence: US)
  Receive Date: 20110809
  Receipt Date: 20140403
  Transmission Date: 20141212
  Serious: Yes (Hospitalization)
  Sender: FDA-Public Use
  Company Number: US-GLAXOSMITHKLINE-A0864604A

PATIENT
  Age: 74 Year
  Sex: Male
  Weight: 72.7 kg

DRUGS (6)
  1. AVANDIA [Suspect]
     Indication: DIABETES MELLITUS
     Dosage: 4MG PER DAY
     Route: 048
     Dates: start: 2003, end: 20100214
  2. GLYBURIDE [Concomitant]
  3. ARICEPT [Concomitant]
  4. OMEPRAZOLE [Concomitant]
  5. DIOVAN [Concomitant]
  6. AVODART [Concomitant]

REACTIONS (1)
  - Ischaemic stroke [Not Recovered/Not Resolved]
